FAERS Safety Report 8121962-5 (Version None)
Quarter: 2012Q1

REPORT INFORMATION
  Report Type: 
  Country: None (occurrence: None)
  Receive Date: 20120206
  Receipt Date: 20120130
  Transmission Date: 20120608
  Serious: Yes (Hospitalization, Other)
  Sender: FDA-Public Use
  Company Number: 2012MA001375

PATIENT
  Age: 69 Year
  Sex: Male

DRUGS (4)
  1. PHENYTOIN [Concomitant]
  2. SUSPENSION USP, 125 MG/5 ML (ALPHARMA) [Concomitant]
  3. LORAZEPAM [Suspect]
     Indication: ALCOHOL WITHDRAWAL SYNDROME
     Dosage: PRN
     Route: 051
  4. DEXMEDETOMODINE HYDROCHLORIDE [Suspect]
     Dosage: 0.3 UG/KG;IV
     Route: 042

REACTIONS (9)
  - DEPRESSED LEVEL OF CONSCIOUSNESS [None]
  - HYPONATRAEMIA [None]
  - MENTAL STATUS CHANGES [None]
  - BLOOD PRESSURE INCREASED [None]
  - AGITATION [None]
  - HEART RATE INCREASED [None]
  - RESPIRATORY DEPRESSION [None]
  - DELIRIUM TREMENS [None]
  - ATRIAL FIBRILLATION [None]
